FAERS Safety Report 6500201-2 (Version None)
Quarter: 2009Q4

REPORT INFORMATION
  Report Type: 
  Country: None (occurrence: None)
  Receive Date: 20091216
  Receipt Date: 20091215
  Transmission Date: 20100525
  Serious: Yes (Other)
  Sender: FDA-Public Use
  Company Number: GB-ROXANE LABORATORIES, INC.-2009-RO-01266RO

PATIENT
  Age: 54 Year
  Sex: Male

DRUGS (4)
  1. AMLODIPINE [Suspect]
     Indication: HYPERTENSION
  2. METHOTREXATE [Suspect]
     Indication: PSORIASIS
     Route: 048
  3. METHOTREXATE [Suspect]
     Route: 048
  4. FUMARIC ACID ESTERS [Concomitant]
     Indication: PSORIASIS

REACTIONS (2)
  - ERECTILE DYSFUNCTION [None]
  - LIBIDO DECREASED [None]
